FAERS Safety Report 7563811-X (Version None)
Quarter: 2011Q2

REPORT INFORMATION
  Report Type: 
  Country: None (occurrence: None)
  Receive Date: 20110622
  Receipt Date: 20110616
  Transmission Date: 20111010
  Serious: Yes (Other)
  Sender: FDA-Public Use
  Company Number: GB-TEVA-234635ISR

PATIENT
  Age: 68 Year
  Sex: Male
  Weight: 59 kg

DRUGS (2)
  1. MESALAMINE [Suspect]
     Indication: CROHN'S DISEASE
     Dosage: 4 DOSAGE FORMS;
     Route: 048
     Dates: start: 20070924, end: 20100305
  2. H1N1 INFLUENZA VACCINE [Interacting]

REACTIONS (3)
  - DRUG INTERACTION [None]
  - HAEMOLYSIS [None]
  - INFLUENZA [None]
